FAERS Safety Report 5658097-7 (Version None)
Quarter: 2008Q1

REPORT INFORMATION
  Report Type: 
  Country: None (occurrence: None)
  Receive Date: 20080310
  Receipt Date: 20061226
  Transmission Date: 20080703
  Serious: No
  Sender: FDA-Public Use
  Company Number: US-BAYER-200615083BCC

PATIENT
  Age: 58 Year
  Sex: Female
  Weight: 64 kg

DRUGS (5)
  1. ALEVE [Suspect]
     Indication: PAIN
     Dosage: UNIT DOSE: 220 MG
     Route: 048
     Dates: start: 20061219
  2. ONE A DAY ALL DAY ENERGY [Suspect]
     Indication: DRUG USE FOR UNKNOWN INDICATION
     Dates: start: 20061221
  3. METFORMIN HCL [Concomitant]
  4. LISINOPRIL [Concomitant]
  5. LIPITOR [Concomitant]

REACTIONS (1)
  - ABDOMINAL PAIN UPPER [None]
